FAERS Safety Report 5423618-6 (Version None)
Quarter: 2007Q3

REPORT INFORMATION
  Report Type: 
  Country: None (occurrence: None)
  Receive Date: 20070823
  Receipt Date: 20070807
  Transmission Date: 20080115
  Serious: Yes (Other)
  Sender: FDA-Public Use
  Company Number: FR-ASTRAZENECA-2007SE03940

PATIENT
  Age: 31137 Day
  Sex: Female
  Weight: 56 kg

DRUGS (5)
  1. KENZEN [Suspect]
     Indication: HYPERTENSION
     Route: 048
     Dates: start: 20051212, end: 20070607
  2. ZANIDIP [Concomitant]
     Indication: HYPERTENSION
     Route: 065
     Dates: start: 20051117, end: 20070702
  3. ATARAX [Concomitant]
     Indication: DRUG USE FOR UNKNOWN INDICATION
     Route: 065
  4. KARDEGIC [Concomitant]
     Indication: DRUG USE FOR UNKNOWN INDICATION
     Route: 065
  5. FORLAX [Concomitant]
     Indication: DRUG USE FOR UNKNOWN INDICATION
     Route: 065

REACTIONS (2)
  - EOSINOPHILIA [None]
  - PEMPHIGOID [None]
